FAERS Safety Report 4450961-X (Version None)
Quarter: 2004Q3

REPORT INFORMATION
  Report Type: 
  Country: None (occurrence: None)
  Receive Date: 20040916
  Receipt Date: 20040212
  Transmission Date: 20050211
  Serious: Yes (Other)
  Sender: FDA-Public Use
  Company Number: US-BRISTOL-MYERS SQUIBB COMPANY-12503850

PATIENT
  Sex: Male

DRUGS (5)
  1. STADOL [Suspect]
     Indication: PAIN
  2. PROZAC [Concomitant]
     Indication: DEPRESSION
  3. ELAVIL [Concomitant]
  4. FLEXERIL [Concomitant]
  5. COUMADIN [Concomitant]
     Indication: THROMBOSIS

REACTIONS (1)
  - DEPENDENCE [None]
